FAERS Safety Report 26123408 (Version 1)
Quarter: 2025Q4

REPORT INFORMATION
  Report Type: Report from Study
  Country: US (occurrence: US)
  Receive Date: 20251204
  Receipt Date: 20251204
  Transmission Date: 20260118
  Serious: Yes (Other)
  Sender: ABBVIE
  Company Number: US-ABBVIE-6574174

PATIENT
  Age: 89 Year
  Sex: Female

DRUGS (1)
  1. RINVOQ [Suspect]
     Active Substance: UPADACITINIB
     Indication: Crohn^s disease
     Route: 048
     Dates: start: 20250929

REACTIONS (3)
  - Neoplasm malignant [Not Recovered/Not Resolved]
  - Breast cancer female [Not Recovered/Not Resolved]
  - Sarcoma [Not Recovered/Not Resolved]

NARRATIVE: CASE EVENT DATE: 20250101
